FAERS Safety Report 6034130-8 (Version None)
Quarter: 2009Q1

REPORT INFORMATION
  Report Type: 
  Country: None (occurrence: None)
  Receive Date: 20090108
  Receipt Date: 20090108
  Transmission Date: 20090719
  Serious: Yes (Hospitalization)
  Sender: FDA-Public Use
  Company Number: None

PATIENT
  Age: 77 Year
  Sex: Male
  Weight: 82.5 kg

DRUGS (1)
  1. POTASSIUM CHLORIDE [Suspect]
     Indication: MINERAL SUPPLEMENTATION
     Dosage: 40 MEQ EVERYDAY PO
     Route: 048
     Dates: start: 20081117, end: 20081230

REACTIONS (1)
  - HYPERKALAEMIA [None]
